FAERS Safety Report 18402663 (Version 2)
Quarter: 2020Q4

REPORT INFORMATION
  Report Type: Spontaneous
  Country: US (occurrence: US)
  Receive Date: 20201019
  Receipt Date: 20201021
  Transmission Date: 20210114
  Serious: Yes (Other)
  Sender: FDA-Public Use
  Company Number: US-TEVA-2020-US-1839256

PATIENT
  Age: 68 Year
  Sex: Female

DRUGS (4)
  1. GABITRIL [Suspect]
     Active Substance: TIAGABINE HYDROCHLORIDE
     Route: 065
     Dates: start: 1993
  2. DEPAKOTE [Concomitant]
     Active Substance: DIVALPROEX SODIUM
  3. PRIMIDONE. [Concomitant]
     Active Substance: PRIMIDONE
  4. GENERIC DEPAKOTE [Suspect]
     Active Substance: DIVALPROEX SODIUM
     Route: 065

REACTIONS (6)
  - Amnesia [Unknown]
  - Seizure [Unknown]
  - Osteoporosis [Unknown]
  - Emotional disorder [Unknown]
  - Gait disturbance [Unknown]
  - Asthenia [Unknown]
